FAERS Safety Report 6884308-6 (Version None)
Quarter: 2010Q3

REPORT INFORMATION
  Report Type: 
  Country: None (occurrence: None)
  Receive Date: 20100729
  Receipt Date: 20070613
  Transmission Date: 20110219
  Serious: Yes (Other)
  Sender: FDA-Public Use
  Company Number: US-PFIZER INC-2007049079

PATIENT
  Sex: Female
  Weight: 61.7 kg

DRUGS (5)
  1. CELEBREX [Suspect]
     Indication: PAIN IN EXTREMITY
     Dates: start: 20070606, end: 20070613
  2. CELEBREX [Suspect]
     Indication: RHEUMATOID ARTHRITIS
  3. CIPROFLOXACIN [Suspect]
  4. ADRENALINE [Suspect]
     Route: 050
  5. ALL OTHER THERAPEUTIC PRODUCTS [Concomitant]
     Indication: HORMONE REPLACEMENT THERAPY

REACTIONS (5)
  - HYPERSENSITIVITY [None]
  - LIMB INJURY [None]
  - PAIN IN EXTREMITY [None]
  - RHEUMATOID ARTHRITIS [None]
  - ROSEOLA [None]
